FAERS Safety Report 8763720 (Version 2)
Quarter: 2012Q4

REPORT INFORMATION
  Report Type: Report from Study
  Country: DE (occurrence: DE)
  Receive Date: 20120828
  Receipt Date: 20120927
  Transmission Date: 20130627
  Serious: Yes (Death, Hospitalization)
  Sender: FDA-Public Use
  Company Number: DE-AMGEN-DEUCT2012053473

PATIENT
  Age: 73 Year
  Sex: Male

DRUGS (12)
  1. PANITUMUMAB [Suspect]
     Indication: OESOPHAGEAL ADENOCARCINOMA
     Dosage: 9 mg/kg, UNK
     Dates: start: 20110830, end: 20111011
  2. EPIRUBICIN [Concomitant]
     Indication: OESOPHAGEAL ADENOCARCINOMA
     Dosage: 50 mg/m2, UNK
     Dates: start: 20110830, end: 20111011
  3. CISPLATIN [Concomitant]
     Indication: OESOPHAGEAL ADENOCARCINOMA
     Dosage: 60 mg/m2, UNK
     Dates: start: 20110830, end: 20111011
  4. CAPECITABINE [Concomitant]
     Indication: OESOPHAGEAL ADENOCARCINOMA
     Dosage: 1063 mg/m2, UNK
     Dates: start: 20110830, end: 20111020
  5. MAGNESIUM VERLA [Concomitant]
     Dosage: UNK UNK, tid
     Dates: end: 20111206
  6. SORTIS [Concomitant]
     Dosage: 10 mg, qd
  7. BISOPROLOL [Concomitant]
     Dosage: 5 mg, bid
     Dates: end: 20111206
  8. ATACAND [Concomitant]
     Dosage: 16 mg, bid
     Dates: end: 20111206
  9. TEMGESIC [Concomitant]
     Dosage: UNK
     Dates: start: 20111204, end: 20111206
  10. CEFOTAXIM [Concomitant]
     Dosage: 2 g, tid
     Dates: start: 20111204, end: 20111205
  11. CLONT [Concomitant]
     Dosage: 500 mg, bid
     Dates: start: 20111204, end: 20111205
  12. ZIENAM [Concomitant]
     Dosage: 500 mg, bid
     Dates: start: 20111205, end: 20111215

REACTIONS (1)
  - Anastomotic leak [Fatal]
